FAERS Safety Report 4327662-1 (Version None)
Quarter: 2004Q1

REPORT INFORMATION
  Report Type: 
  Country: None (occurrence: None)
  Receive Date: 20040325
  Receipt Date: 20040323
  Transmission Date: 20041129
  Serious: Yes (Hospitalization)
  Sender: FDA-Public Use
  Company Number: US-SHR-03-016235

PATIENT
  Age: 58 Year
  Sex: Female

DRUGS (6)
  1. BETASERON (INTERFERON BETA 1 B) [Suspect]
     Indication: MULTIPLE SCLEROSIS
     Dosage: 8 MIU, EVERY 2D, SUBCUTANEOUS
     Route: 058
     Dates: start: 20030101
  2. PROVIGIL [Concomitant]
  3. NEURONTIN [Concomitant]
  4. VALIUM [Concomitant]
  5. TYLENOL W/ CODEINE NO. 3 [Concomitant]
  6. IMMUNE GLOBULIN INTRAVENOUS (HUMAN) [Concomitant]

REACTIONS (4)
  - CONDITION AGGRAVATED [None]
  - INJECTION SITE ERYTHEMA [None]
  - INJECTION SITE OEDEMA [None]
  - PRINZMETAL ANGINA [None]
